FAERS Safety Report 17699857 (Version 3)
Quarter: 2020Q2

REPORT INFORMATION
  Report Type: Spontaneous
  Country: DE (occurrence: DE)
  Receive Date: 20200423
  Receipt Date: 20200611
  Transmission Date: 20200714
  Serious: Yes (Life-Threatening)
  Sender: FDA-Public Use
  Company Number: NVSC2020DE108009

PATIENT
  Age: 82 Year
  Sex: Male
  Weight: 76 kg

DRUGS (4)
  1. CEFPODOXIM - 1 A PHARMA 200 MG FILMTABLETTEN [Suspect]
     Active Substance: CEFPODOXIME PROXETIL
     Indication: BRONCHITIS
     Dosage: 3 DF, OT, (1-0-1 INSGESAMT WURDEN 3 TABLETTEN GENOMMEN ERSTMALIGE ANWENDUNG)
     Route: 048
     Dates: start: 20191228, end: 20191229
  2. METOPROLOL. [Concomitant]
     Active Substance: METOPROLOL
     Indication: PRODUCT USED FOR UNKNOWN INDICATION
     Dosage: UNK
     Route: 065
  3. NITROLINGUAL [Concomitant]
     Active Substance: NITROGLYCERIN
     Indication: PRODUCT USED FOR UNKNOWN INDICATION
     Dosage: UNK (SPRAY)
     Route: 065
  4. ACC LONG [Concomitant]
     Active Substance: ACETYLCYSTEINE
     Indication: PRODUCT USED FOR UNKNOWN INDICATION
     Dosage: UNK
     Route: 065

REACTIONS (7)
  - Gait inability [Recovering/Resolving]
  - Vertigo [Recovering/Resolving]
  - Monoparesis [Recovering/Resolving]
  - Dizziness [Not Recovered/Not Resolved]
  - Immobile [Not Recovered/Not Resolved]
  - Balance disorder [Recovering/Resolving]
  - Limb discomfort [Unknown]

NARRATIVE: CASE EVENT DATE: 20191229
